FAERS Safety Report 16271593 (Version 2)
Quarter: 2019Q2

REPORT INFORMATION
  Report Type: Spontaneous
  Country: JP (occurrence: JP)
  Receive Date: 20190503
  Receipt Date: 20190606
  Transmission Date: 20190711
  Serious: Yes (Other)
  Sender: FDA-Public Use
  Company Number: JP-JNJFOC-20190442020

PATIENT
  Age: 3 Decade
  Sex: Male
  Weight: 55 kg

DRUGS (23)
  1. BICARBON [Concomitant]
     Active Substance: SODIUM BICARBONATE
     Indication: PRODUCT USED FOR UNKNOWN INDICATION
     Route: 065
     Dates: start: 201711
  2. HEPARIN [Concomitant]
     Active Substance: HEPARIN SODIUM
     Indication: PRODUCT USED FOR UNKNOWN INDICATION
     Route: 065
     Dates: start: 201711
  3. LOXOPROFEN [Concomitant]
     Active Substance: LOXOPROFEN
     Indication: PRODUCT USED FOR UNKNOWN INDICATION
     Route: 048
     Dates: start: 2017
  4. HYDROXYETHYLSTARCH [Concomitant]
     Active Substance: HETASTARCH
     Indication: PRODUCT USED FOR UNKNOWN INDICATION
     Route: 065
     Dates: start: 201711
  5. XYLOCAINE [Concomitant]
     Active Substance: LIDOCAINE HYDROCHLORIDE
     Indication: PRODUCT USED FOR UNKNOWN INDICATION
     Route: 065
     Dates: start: 201711
  6. FENTANYL IV [Suspect]
     Active Substance: FENTANYL
     Indication: ANAESTHESIA PROCEDURE
     Route: 042
     Dates: start: 201711, end: 201711
  7. ACELIO [Concomitant]
     Active Substance: ACETAMINOPHEN
     Indication: PRODUCT USED FOR UNKNOWN INDICATION
     Route: 065
     Dates: start: 201711
  8. SEVOFLURANE. [Concomitant]
     Active Substance: SEVOFLURANE
     Indication: PRODUCT USED FOR UNKNOWN INDICATION
     Route: 065
     Dates: start: 201711
  9. MECOBALAMIN [Concomitant]
     Active Substance: METHYLCOBALAMIN
     Indication: PRODUCT USED FOR UNKNOWN INDICATION
     Route: 048
     Dates: start: 2017
  10. SALINHES [Concomitant]
     Active Substance: HETASTARCH
     Indication: PRODUCT USED FOR UNKNOWN INDICATION
     Route: 065
     Dates: start: 201711
  11. RANITIDINE. [Concomitant]
     Active Substance: RANITIDINE
     Indication: PRODUCT USED FOR UNKNOWN INDICATION
     Route: 065
     Dates: start: 201711
  12. ADRENALINE [Concomitant]
     Active Substance: EPINEPHRINE
     Indication: PRODUCT USED FOR UNKNOWN INDICATION
     Route: 065
     Dates: start: 201711
  13. DROLEPTAN [Suspect]
     Active Substance: DROPERIDOL
     Indication: ANAESTHESIA PROCEDURE
     Route: 042
     Dates: start: 201711, end: 201711
  14. REBAMIPIDE [Concomitant]
     Active Substance: REBAMIPIDE
     Indication: PRODUCT USED FOR UNKNOWN INDICATION
     Route: 048
     Dates: start: 2017
  15. SOLDEM 1 [Concomitant]
     Active Substance: DEXTROSE\SODIUM CHLORIDE\SODIUM LACTATE
     Indication: PRODUCT USED FOR UNKNOWN INDICATION
     Route: 065
     Dates: start: 201711
  16. ROCURONIUM BROMIDE. [Concomitant]
     Active Substance: ROCURONIUM BROMIDE
     Indication: PRODUCT USED FOR UNKNOWN INDICATION
     Route: 065
     Dates: start: 201711
  17. BRIDION [Concomitant]
     Active Substance: SUGAMMADEX
     Indication: PRODUCT USED FOR UNKNOWN INDICATION
     Route: 065
     Dates: start: 201711
  18. CEFAZOLIN SODIUM. [Concomitant]
     Active Substance: CEFAZOLIN SODIUM
     Indication: PRODUCT USED FOR UNKNOWN INDICATION
     Route: 065
     Dates: start: 201711
  19. EPHEDRIN [Concomitant]
     Active Substance: EPHEDRINE HYDROCHLORIDE
     Indication: PRODUCT USED FOR UNKNOWN INDICATION
     Route: 065
     Dates: start: 201711
  20. ULTIVA [Suspect]
     Active Substance: REMIFENTANIL HYDROCHLORIDE
     Indication: ANAESTHESIA PROCEDURE
     Route: 042
     Dates: start: 201711
  21. SERENACE [Suspect]
     Active Substance: HALOPERIDOL
     Indication: DELIRIUM
     Route: 042
     Dates: start: 201711, end: 201711
  22. DROLEPTAN [Suspect]
     Active Substance: DROPERIDOL
     Indication: ANAESTHESIA PROCEDURE
     Route: 042
     Dates: start: 201711
  23. AMIPAREN [Concomitant]
     Active Substance: AMINO ACIDS
     Indication: PRODUCT USED FOR UNKNOWN INDICATION
     Route: 065
     Dates: start: 201711

REACTIONS (4)
  - Incorrect route of product administration [Unknown]
  - Neuroleptic malignant syndrome [Recovered/Resolved]
  - Serotonin syndrome [Recovered/Resolved]
  - Off label use [Unknown]

NARRATIVE: CASE EVENT DATE: 201711
